FAERS Safety Report 8645642 (Version 5)
Quarter: 2013Q2

REPORT INFORMATION
  Report Type: Report from Study
  Country: GB (occurrence: GB)
  Receive Date: 20120702
  Receipt Date: 20130417
  Transmission Date: 20140414
  Serious: Yes (Hospitalization)
  Sender: FDA-Public Use
  Company Number: PHFR2012GB003741

PATIENT
  Age: 23 Year
  Sex: Female
  Weight: 64 kg

DRUGS (6)
  1. ACZ885 [Suspect]
     Indication: CRYOPYRIN ASSOCIATED PERIODIC SYNDROME
     Dosage: 150 MG, EVERY 8 WEEKS
     Route: 058
     Dates: start: 200705
  2. ACZ885 [Suspect]
     Dosage: UNK
     Dates: start: 20110811
  3. ACZ885 [Suspect]
     Dosage: 150 MG, EVERY 8 WEEKS
     Route: 058
     Dates: start: 20120215
  4. SERTRALINE [Concomitant]
     Indication: DEPRESSION
     Dosage: 150 MG, QD
     Route: 048
     Dates: start: 201108
  5. DIAZEPAM [Concomitant]
     Indication: ANXIETY
     Dosage: 2 MG, PRN
     Route: 048
  6. ZOPICLONE [Concomitant]
     Indication: ANXIETY
     Dosage: 7.5 MG, QD
     Route: 048

REACTIONS (1)
  - Lower respiratory tract infection viral [Recovered/Resolved]
